FAERS Safety Report 17888194 (Version 1)
Quarter: 2020Q2

REPORT INFORMATION
  Report Type: Spontaneous
  Country: US (occurrence: US)
  Receive Date: 20200611
  Receipt Date: 20200611
  Transmission Date: 20200714
  Serious: No
  Sender: FDA-Public Use
  Company Number: None

PATIENT
  Age: 80 Year
  Sex: Male
  Weight: 80 kg

DRUGS (3)
  1. REMDESIVIR. [Suspect]
     Active Substance: REMDESIVIR
     Indication: COVID-19
     Route: 042
     Dates: start: 20200601, end: 20200605
  2. ATORVASTATIN [Concomitant]
     Active Substance: ATORVASTATIN
     Dates: start: 20200523, end: 20200604
  3. AMIODARONE [Concomitant]
     Active Substance: AMIODARONE
     Dates: start: 20200603, end: 20200604

REACTIONS (1)
  - Alanine aminotransferase increased [None]

NARRATIVE: CASE EVENT DATE: 20200607
